FAERS Safety Report 7149665-4 (Version None)
Quarter: 2010Q4

REPORT INFORMATION
  Report Type: 
  Country: None (occurrence: None)
  Receive Date: 20101209
  Receipt Date: 20101203
  Transmission Date: 20110411
  Serious: Yes (Hospitalization)
  Sender: FDA-Public Use
  Company Number: AT-GILEAD-2010-0034151

PATIENT
  Sex: Female

DRUGS (1)
  1. TRUVADA [Suspect]
     Indication: HIV INFECTION
     Dates: start: 20080429, end: 20090620

REACTIONS (2)
  - BONE PAIN [None]
  - GLOMERULAR FILTRATION RATE DECREASED [None]
